FAERS Safety Report 24806787 (Version 1)
Quarter: 2025Q1

REPORT INFORMATION
  Report Type: Report from Study
  Country: DE (occurrence: DE)
  Receive Date: 20250104
  Receipt Date: 20250104
  Transmission Date: 20250408
  Serious: Yes (Other)
  Sender: AUROBINDO
  Company Number: DE-STADA-01334461

PATIENT
  Age: 21 Year
  Sex: Female

DRUGS (2)
  1. RIVAROXABAN [Suspect]
     Active Substance: RIVAROXABAN
     Indication: Embolism
     Route: 065
  2. RIVAROXABAN [Suspect]
     Active Substance: RIVAROXABAN
     Dosage: 20 MILLIGRAM, ONCE A DAY
     Route: 065

REACTIONS (2)
  - Gastrointestinal haemorrhage [Unknown]
  - Drug ineffective [Unknown]
